FAERS Safety Report 5315101-3 (Version None)
Quarter: 2007Q2

REPORT INFORMATION
  Report Type: 
  Country: None (occurrence: None)
  Receive Date: 20070502
  Receipt Date: 20070426
  Transmission Date: 20071010
  Serious: Yes (Disabling)
  Sender: FDA-Public Use
  Company Number: US-BOEHRINGER INGELHEIM PHARMACEUTICALS, INC.-2006-BP-13380BP

PATIENT
  Sex: Male

DRUGS (7)
  1. FLOMAX [Suspect]
     Indication: BENIGN PROSTATIC HYPERPLASIA
     Route: 048
     Dates: start: 20050601, end: 20060401
  2. ATENOLOL [Concomitant]
  3. LISINOPRIL [Concomitant]
  4. LIPITOR [Concomitant]
  5. PROTONIX [Concomitant]
  6. ZOLOFT [Concomitant]
  7. LOW STRENGTH ASPIRIN [Concomitant]

REACTIONS (9)
  - BLINDNESS [None]
  - CATARACT [None]
  - DIPLOPIA [None]
  - DIZZINESS [None]
  - EYE DISORDER [None]
  - MUSCLE SPASMS [None]
  - NIGHT BLINDNESS [None]
  - RETINAL DETACHMENT [None]
  - VISUAL DISTURBANCE [None]
